FAERS Safety Report 23500743 (Version 1)
Quarter: 2024Q1

REPORT INFORMATION
  Report Type: Spontaneous
  Country: CN (occurrence: CN)
  Receive Date: 20240208
  Receipt Date: 20240208
  Transmission Date: 20240410
  Serious: Yes (Hospitalization, Disabling)
  Sender: FDA-Public Use
  Company Number: CN-PFIZER INC-PV202400017242

PATIENT
  Age: 77 Year
  Sex: Male
  Weight: 56 kg

DRUGS (4)
  1. ZYVOX [Suspect]
     Active Substance: LINEZOLID
     Indication: Haematochezia
     Dosage: 0.6 G, 2X/DAY
     Route: 041
     Dates: start: 20240124, end: 20240124
  2. ZYVOX [Suspect]
     Active Substance: LINEZOLID
     Dosage: 0.6 G
     Route: 041
     Dates: start: 20240202, end: 20240202
  3. SODIUM CHLORIDE [Concomitant]
     Active Substance: SODIUM CHLORIDE
     Indication: Vehicle solution use
     Dosage: 100 ML, 1X/DAY
     Route: 041
     Dates: start: 20240129, end: 20240204
  4. VANCOCIN [Concomitant]
     Active Substance: VANCOMYCIN HYDROCHLORIDE
     Indication: Anti-infective therapy
     Dosage: 300 MG, 1X/DAY
     Route: 041
     Dates: start: 20240129, end: 20240204

REACTIONS (5)
  - Diarrhoea haemorrhagic [Recovering/Resolving]
  - Melaena [Recovering/Resolving]
  - Lower gastrointestinal haemorrhage [Recovering/Resolving]
  - Upper gastrointestinal haemorrhage [Recovering/Resolving]
  - Occult blood positive [Recovering/Resolving]

NARRATIVE: CASE EVENT DATE: 20240124
